FAERS Safety Report 7110139-8 (Version None)
Quarter: 2010Q4

REPORT INFORMATION
  Report Type: 
  Country: None (occurrence: None)
  Receive Date: 20101116
  Receipt Date: 20101116
  Transmission Date: 20110411
  Serious: Yes (Other)
  Sender: FDA-Public Use
  Company Number: None

PATIENT
  Age: 5 Year
  Sex: Male
  Weight: 23.81 kg

DRUGS (1)
  1. METHOTREXATE 25 MG/ML MAYNE OR BEDFORD [Suspect]
     Indication: BONE SARCOMA
     Dosage: 10 GM OVER 4 HOURS IV DRIP
     Route: 041
     Dates: start: 20101019, end: 20101019

REACTIONS (3)
  - PERIORBITAL OEDEMA [None]
  - RASH ERYTHEMATOUS [None]
  - RASH PAPULAR [None]
